FAERS Safety Report 23397450 (Version 2)
Quarter: 2024Q1

REPORT INFORMATION
  Report Type: Spontaneous
  Country: AU (occurrence: AU)
  Receive Date: 20240112
  Receipt Date: 20240116
  Transmission Date: 20240410
  Serious: Yes (Other)
  Sender: FDA-Public Use
  Company Number: AU-LUNDBECK-DKLU3072456

PATIENT
  Age: 43 Year
  Sex: Female

DRUGS (1)
  1. ESCITALOPRAM [Suspect]
     Active Substance: ESCITALOPRAM OXALATE
     Indication: Product used for unknown indication
     Route: 048
     Dates: start: 202308

REACTIONS (7)
  - Delusional disorder, persecutory type [Recovering/Resolving]
  - Suicidal ideation [Recovering/Resolving]
  - Self-injurious ideation [Unknown]
  - Depression [Recovering/Resolving]
  - Agitation [Recovering/Resolving]
  - Insomnia [Unknown]
  - Paranoia [Unknown]

NARRATIVE: CASE EVENT DATE: 20230901
